FAERS Safety Report 14995363 (Version 1)
Quarter: 2018Q2

REPORT INFORMATION
  Report Type: Spontaneous
  Country: US (occurrence: US)
  Receive Date: 20180521
  Receipt Date: 20180521
  Transmission Date: 20180711
  Serious: Yes (Hospitalization, Disabling)
  Sender: FDA-Public Use
  Company Number: None

PATIENT
  Age: 44 Year
  Sex: Female
  Weight: 40.5 kg

DRUGS (2)
  1. LYRICA [Concomitant]
     Active Substance: PREGABALIN
  2. CIPROFLOXACIN. [Suspect]
     Active Substance: CIPROFLOXACIN
     Indication: POST PROCEDURAL INFECTION
     Dates: start: 20130410, end: 20130413

REACTIONS (2)
  - Neuropathy peripheral [None]
  - Nerve injury [None]

NARRATIVE: CASE EVENT DATE: 20130410
